FAERS Safety Report 11909110 (Version 1)
Quarter: 2016Q1

REPORT INFORMATION
  Report Type: Report from Study
  Country: CA (occurrence: CA)
  Receive Date: 20160112
  Receipt Date: 20160112
  Transmission Date: 20160526
  Serious: Yes (Other)
  Sender: FDA-Public Use
  Company Number: CA-AMGEN-CANSL2016000489

PATIENT
  Age: 56 Year
  Sex: Female

DRUGS (1)
  1. PROLIA [Suspect]
     Active Substance: DENOSUMAB
     Indication: PRODUCT USED FOR UNKNOWN INDICATION
     Dosage: UNK
     Route: 065

REACTIONS (10)
  - Steatorrhoea [Unknown]
  - Abdominal distension [Unknown]
  - Bone pain [Unknown]
  - Myalgia [Unknown]
  - Intervertebral disc degeneration [Unknown]
  - Dizziness [Unknown]
  - Dyspnoea [Unknown]
  - Back pain [Unknown]
  - Epistaxis [Unknown]
  - Infrequent bowel movements [Recovered/Resolved]

NARRATIVE: CASE EVENT DATE: 201512
